FAERS Safety Report 18474310 (Version 1)
Quarter: 2020Q4

REPORT INFORMATION
  Report Type: Spontaneous
  Country: GB (occurrence: GB)
  Receive Date: 20201106
  Receipt Date: 20201106
  Transmission Date: 20210114
  Serious: Yes (Other)
  Sender: FDA-Public Use
  Company Number: GB-TEVA-2020-GB-1844899

PATIENT
  Age: 73 Year
  Sex: Male

DRUGS (4)
  1. PEMBROLIZUMAB. [Suspect]
     Active Substance: PEMBROLIZUMAB
     Route: 065
  2. CARBOPLATIN. [Suspect]
     Active Substance: CARBOPLATIN
     Route: 065
  3. PEMETREXED. [Suspect]
     Active Substance: PEMETREXED
     Route: 065
  4. DEXAMETHASONE. [Suspect]
     Active Substance: DEXAMETHASONE
     Dosage: 16 MILLIGRAM DAILY; EVERY MORNING AND LUNCH FOR 3 DAYS BEFORE CHEMOTHERAPY.
     Route: 065

REACTIONS (1)
  - Neutropenic sepsis [Unknown]
